FAERS Safety Report 8844659 (Version 2)
Quarter: 2013Q1

REPORT INFORMATION
  Report Type: Spontaneous
  Country: US (occurrence: None)
  Receive Date: 20121012
  Receipt Date: 20121025
  Transmission Date: 20140127
  Serious: No
  Sender: FDA-Public Use
  Company Number: US-DEXPHARM-20121327

PATIENT
  Age: 43 Year
  Sex: Male
  Weight: 113.38 kg

DRUGS (1)
  1. OMEPRAZOLE DELAYED RELEASE [Suspect]
     Indication: DYSPEPSIA
     Route: 048
     Dates: start: 20121004, end: 20121004

REACTIONS (6)
  - Rash [None]
  - Urticaria [None]
  - Dyspnoea [None]
  - Throat tightness [None]
  - Hypersensitivity [None]
  - Angioedema [None]
